FAERS Safety Report 14753833 (Version 5)
Quarter: 2019Q1

REPORT INFORMATION
  Report Type: Spontaneous
  Country: FR (occurrence: FR)
  Receive Date: 20180412
  Receipt Date: 20190207
  Transmission Date: 20190417
  Serious: Yes (Hospitalization)
  Sender: FDA-Public Use
  Company Number: FR-PFIZER INC-2018151345

PATIENT
  Age: 82 Year
  Sex: Male
  Weight: 98 kg

DRUGS (9)
  1. PYOSTACINE [Suspect]
     Active Substance: PRISTINAMYCIN
     Indication: INFECTIOUS PLEURAL EFFUSION
     Dosage: 3 G, DAILY
     Route: 048
     Dates: start: 20180105, end: 20180120
  2. TRIATEC (RAMIPRIL) [Suspect]
     Active Substance: RAMIPRIL
     Indication: HYPERTENSION
     Dosage: 1 DF, DAILY
     Route: 048
     Dates: start: 2013, end: 20180305
  3. LASILIX [Suspect]
     Active Substance: FUROSEMIDE
     Indication: HYPERTENSIVE HEART DISEASE
     Dosage: 1 DF, DAILY
     Route: 048
  4. PREVISCAN (FLUINDIONE) [Suspect]
     Active Substance: FLUINDIONE
     Indication: HYPERTENSIVE HEART DISEASE
     Dosage: UNK
     Route: 048
     Dates: start: 2013, end: 20180305
  5. COZAAR [Suspect]
     Active Substance: LOSARTAN POTASSIUM
     Indication: HYPERTENSION
     Dosage: 1 DF, DAILY
     Route: 048
     Dates: start: 2013, end: 20180305
  6. TEMERIT [Suspect]
     Active Substance: NEBIVOLOL
     Indication: HYPERTENSIVE HEART DISEASE
     Dosage: 1 DF, DAILY
     Route: 048
     Dates: start: 2013, end: 20180308
  7. METHOTREXATE SODIUM. [Suspect]
     Active Substance: METHOTREXATE SODIUM
     Indication: PSORIATIC ARTHROPATHY
     Dosage: 10 MG, WEEKLY
     Route: 048
     Dates: start: 2007, end: 201712
  8. TAHOR [Suspect]
     Active Substance: ATORVASTATIN CALCIUM
     Indication: CARDIOVASCULAR EVENT PROPHYLAXIS
     Dosage: 1 DF, DAILY
     Route: 048
     Dates: start: 2013, end: 20180305
  9. ALLOPURINOL. [Suspect]
     Active Substance: ALLOPURINOL
     Indication: GOUT
     Dosage: 100 MG, DAILY
     Route: 048
     Dates: start: 2010, end: 20180305

REACTIONS (3)
  - Vasculitis necrotising [Not Recovered/Not Resolved]
  - Rash papular [Recovering/Resolving]
  - Pruritus [Recovering/Resolving]

NARRATIVE: CASE EVENT DATE: 201801
